FAERS Safety Report 7901505-9 (Version None)
Quarter: 2011Q4

REPORT INFORMATION
  Report Type: 
  Country: None (occurrence: None)
  Receive Date: 20111108
  Receipt Date: 20111101
  Transmission Date: 20120403
  Serious: Yes (Other)
  Sender: FDA-Public Use
  Company Number: CA-BAYER-2011-105704

PATIENT
  Sex: Female

DRUGS (1)
  1. MIRENA [Suspect]
     Indication: ENDOMETRIOSIS
     Dosage: 20 MCG/24HR, CONT
     Route: 015
     Dates: start: 20111024, end: 20111029

REACTIONS (7)
  - ABDOMINAL PAIN [None]
  - PELVIC PAIN [None]
  - DEVICE EXPULSION [None]
  - PROCEDURAL PAIN [None]
  - ABDOMINAL PAIN LOWER [None]
  - CERVIX INFLAMMATION [None]
  - BACK PAIN [None]
